FAERS Safety Report 8311520-1 (Version None)
Quarter: 2012Q1

REPORT INFORMATION
  Report Type: 
  Country: None (occurrence: None)
  Receive Date: 20120315
  Receipt Date: 20110422
  Transmission Date: 20120608
  Serious: No
  Sender: FDA-Public Use
  Company Number: PHHY2010US89731

PATIENT
  Age: 48 Year
  Sex: Female

DRUGS (4)
  1. CLONAZEPAM [Concomitant]
  2. ESTLMETHEST [Concomitant]
  3. LEVOTHYROXINE SODIUM [Concomitant]
  4. GILENYA [Suspect]
     Indication: MULTIPLE SCLEROSIS
     Dosage: 0.5 MG, DAILY, ORAL
     Route: 048
     Dates: start: 20110114

REACTIONS (2)
  - FATIGUE [None]
  - BACK PAIN [None]
